APPROVED DRUG PRODUCT: ELTROMBOPAG OLAMINE
Active Ingredient: ELTROMBOPAG OLAMINE
Strength: EQ 75MG ACID
Dosage Form/Route: TABLET;ORAL
Application: A206788 | Product #004 | TE Code: AB
Applicant: HETERO LABS LTD UNIT V
Approved: Jan 17, 2025 | RLD: No | RS: No | Type: RX